FAERS Safety Report 6665872-9 (Version None)
Quarter: 2010Q2

REPORT INFORMATION
  Report Type: 
  Country: None (occurrence: None)
  Receive Date: 20100402
  Receipt Date: 20100329
  Transmission Date: 20101027
  Serious: Yes (Death, Life-Threatening)
  Sender: FDA-Public Use
  Company Number: PL-ELI_LILLY_AND_COMPANY-PL201001003507

PATIENT
  Sex: Male
  Weight: 100 kg

DRUGS (9)
  1. XIGRIS [Suspect]
     Indication: SEPSIS
     Dosage: 0.024 MG/KG, EVERY HOUR
     Route: 042
     Dates: start: 20100106, end: 20100109
  2. AMBROHEXAL [Concomitant]
     Indication: SHOCK
     Dosage: UNK, UNKNOWN
     Route: 042
     Dates: start: 20100106
  3. NORADRENALINE [Concomitant]
     Indication: SHOCK
     Dosage: UNK, UNKNOWN
     Route: 042
     Dates: start: 20100106
  4. DOBUTAMINE [Concomitant]
     Indication: SHOCK
     Dosage: UNK, UNKNOWN
     Route: 042
     Dates: start: 20100106
  5. FRAXIPARINE [Concomitant]
     Dosage: UNK, UNKNOWN
     Route: 042
     Dates: start: 20100105, end: 20100106
  6. NEXIUM [Concomitant]
     Dosage: UNK, UNKNOWN
     Route: 042
     Dates: start: 20100105, end: 20100106
  7. MERONEM [Concomitant]
     Dosage: UNK, UNKNOWN
     Route: 065
  8. TARGOCID [Concomitant]
     Dosage: UNK, UNKNOWN
     Route: 065
  9. ENOXAPARIN SODIUM [Concomitant]

REACTIONS (1)
  - BRAIN OEDEMA [None]
